FAERS Safety Report 9384138 (Version 2)
Quarter: 2013Q4

REPORT INFORMATION
  Report Type: Spontaneous
  Country: BR (occurrence: BR)
  Receive Date: 20130705
  Receipt Date: 20131206
  Transmission Date: 20140711
  Serious: Yes (Hospitalization, Other)
  Sender: FDA-Public Use
  Company Number: BR-AMGEN-BRASP2013046655

PATIENT
  Age: 58 Year
  Sex: Female
  Weight: 78 kg

DRUGS (5)
  1. ENBREL [Suspect]
     Indication: RHEUMATOID ARTHRITIS
     Dosage: 50 MG, 1X/WEEK
     Route: 058
     Dates: start: 201309
  2. ARAVA [Concomitant]
     Dosage: 1 TABLET, 1X/DAY
     Route: 048
  3. PREDNISONE [Concomitant]
     Dosage: 1 TABLET OF STRENGTH 5 MG, 1X/DAY
     Route: 048
  4. BETALOR [Concomitant]
     Dosage: UNK
  5. ATENOLOL [Concomitant]
     Dosage: 1 TABLET OF STRENGTH [5/50 MG] (AS REPORTED) 1X/DAY
     Route: 048

REACTIONS (7)
  - Headache [Not Recovered/Not Resolved]
  - Urinary tract infection [Not Recovered/Not Resolved]
  - Injection site hypersensitivity [Unknown]
  - Injection site pain [Unknown]
  - Injection site swelling [Unknown]
  - Injection site erythema [Unknown]
  - Injection site haematoma [Unknown]
